FAERS Safety Report 17309255 (Version 2)
Quarter: 2020Q1

REPORT INFORMATION
  Report Type: Spontaneous
  Country: FI (occurrence: FI)
  Receive Date: 20200123
  Receipt Date: 20200130
  Transmission Date: 20200409
  Serious: Yes (Other)
  Sender: FDA-Public Use
  Company Number: FI-JNJFOC-20200118494

PATIENT
  Sex: Male

DRUGS (1)
  1. EVICEL [Suspect]
     Active Substance: FIBRINOGEN HUMAN\THROMBIN HUMAN
     Indication: NERVE GRAFT
     Route: 065

REACTIONS (3)
  - Product use in unapproved indication [Unknown]
  - Idiopathic condylar resorption [Unknown]
  - Off label use [Unknown]
